FAERS Safety Report 24378107 (Version 5)
Quarter: 2024Q4

REPORT INFORMATION
  Report Type: Spontaneous
  Country: US (occurrence: US)
  Receive Date: 20240930
  Receipt Date: 20241216
  Transmission Date: 20250114
  Serious: No
  Sender: PFIZER
  Company Number: US-PFIZER INC-202400261782

PATIENT
  Age: 8 Year
  Sex: Male
  Weight: 17.234 kg

DRUGS (3)
  1. GENOTROPIN [Suspect]
     Active Substance: SOMATROPIN
     Dosage: ALTERNATE SIX AND EIGHT; SUPPOSED TO BE SEVEN BUT WE CANNOT DO THAT WITH THIS PRODUCT
  2. CONCERTA [Concomitant]
     Active Substance: METHYLPHENIDATE HYDROCHLORIDE
     Indication: Attention deficit hyperactivity disorder
     Dosage: UNK
  3. GUANFACINE [Concomitant]
     Active Substance: GUANFACINE
     Indication: Attention deficit hyperactivity disorder
     Dosage: UNK

REACTIONS (3)
  - Poor quality device used [Unknown]
  - Liquid product physical issue [Unknown]
  - Device leakage [Unknown]
